FAERS Safety Report 10177727 (Version 1)
Quarter: 2014Q2

REPORT INFORMATION
  Report Type: Spontaneous
  Country: US (occurrence: US)
  Receive Date: 20140516
  Receipt Date: 20140516
  Transmission Date: 20141212
  Serious: No
  Sender: FDA-Public Use
  Company Number: US-SA-2014SA045932

PATIENT
  Age: 32 Year
  Sex: Male

DRUGS (2)
  1. APIDRA [Suspect]
     Indication: TYPE 1 DIABETES MELLITUS
     Dosage: DOSAGE VARY: 0.8 U/HR DURING THE DAY TO ABOUT 1.05 U/HR AT NIGHT, 1 UNIT PER HOUR IN OMNIPOD PUMP
     Route: 065
     Dates: start: 201207
  2. APIDRA [Suspect]
     Indication: TYPE 1 DIABETES MELLITUS
     Dosage: DOSAGE VARY: 0.8 U/HR DURING THE DAY TO ABOUT 1.05 U/HR AT NIGHT, 1 UNIT PER HOUR IN OMNIPOD PUMP
     Route: 065
     Dates: start: 2014, end: 20140407

REACTIONS (2)
  - Blood glucose increased [Not Recovered/Not Resolved]
  - Drug ineffective [Unknown]
